FAERS Safety Report 4732887-7 (Version None)
Quarter: 2005Q3

REPORT INFORMATION
  Report Type: 
  Country: None (occurrence: None)
  Receive Date: 20050803
  Receipt Date: 20050426
  Transmission Date: 20060218
  Serious: No
  Sender: FDA-Public Use
  Company Number: US-GLAXOSMITHKLINE-A0555865A

PATIENT
  Age: 33 Year
  Sex: Male

DRUGS (2)
  1. AVANDAMET [Suspect]
     Route: 048
  2. GLUCOPHAGE [Concomitant]

REACTIONS (5)
  - DIARRHOEA [None]
  - DRUG ADMINISTRATION ERROR [None]
  - MALAISE [None]
  - NAUSEA [None]
  - PYREXIA [None]
